FAERS Safety Report 24929276 (Version 4)
Quarter: 2025Q3

REPORT INFORMATION
  Report Type: Spontaneous
  Country: JP (occurrence: JP)
  Receive Date: 20250205
  Receipt Date: 20250809
  Transmission Date: 20251021
  Serious: Yes (Death, Life-Threatening, Other)
  Sender: ALEXION PHARMACEUTICALS
  Company Number: JP-ASTRAZENECA-240140949_013120_P_1

PATIENT
  Age: 76 Year
  Sex: Male
  Weight: 70 kg

DRUGS (20)
  1. IMFINZI [Suspect]
     Active Substance: DURVALUMAB
     Indication: Bile duct cancer
     Dosage: 1500 MILLIGRAM, Q3W
     Dates: start: 20241112, end: 20241224
  2. GEMZAR [Suspect]
     Active Substance: GEMCITABINE HYDROCHLORIDE
     Indication: Bile duct cancer
     Route: 065
  3. GEMZAR [Suspect]
     Active Substance: GEMCITABINE HYDROCHLORIDE
     Dosage: 1800 MILLIGRAM, Q3W
     Route: 065
     Dates: start: 20241112
  4. GEMZAR [Suspect]
     Active Substance: GEMCITABINE HYDROCHLORIDE
     Dosage: 450 MILLIGRAM, Q3W
     Route: 065
     Dates: end: 20241203
  5. CISPLATIN [Suspect]
     Active Substance: CISPLATIN
     Indication: Bile duct cancer
     Dosage: DOSE UNKNOWN
     Route: 065
     Dates: start: 20241112
  6. CISPLATIN [Suspect]
     Active Substance: CISPLATIN
     Route: 065
  7. ADETPHOS [Concomitant]
     Active Substance: ADENOSINE TRIPHOSPHATE
     Indication: Dizziness
     Dosage: 1 GRAM, TID GRANULATED POWDER
     Dates: end: 20250115
  8. ADETPHOS [Concomitant]
     Active Substance: ADENOSINE TRIPHOSPHATE
     Indication: Dizziness
  9. METHYLCOBALAMIN [Concomitant]
     Active Substance: METHYLCOBALAMIN
     Indication: Dizziness
     Dosage: 500 MICROGRAM, TID
     Dates: end: 20250115
  10. METHYLCOBALAMIN [Concomitant]
     Active Substance: METHYLCOBALAMIN
     Indication: Dizziness
  11. RIVOTRIL [Concomitant]
     Active Substance: CLONAZEPAM
     Indication: Dizziness
     Dosage: 0.5 MICROGRAM, TID
     Dates: end: 20250115
  12. RIVOTRIL [Concomitant]
     Active Substance: CLONAZEPAM
     Indication: Dizziness
  13. OLMESARTAN [Concomitant]
     Active Substance: OLMESARTAN
     Indication: Hypertension
     Dates: end: 20250107
  14. AMLODIPINE [Concomitant]
     Active Substance: AMLODIPINE BESYLATE
     Indication: Hypertension
     Dosage: 10 MICROGRAM, QD
     Dates: end: 20250107
  15. MIYA-BM [Concomitant]
     Active Substance: CLOSTRIDIUM BUTYRICUM SPORES STRAIN M-55
     Indication: Gastroenteritis
     Dosage: 1 GRAM, TID
     Dates: end: 20250115
  16. MOSAPRIDE [Concomitant]
     Active Substance: MOSAPRIDE
     Indication: Depression
     Dosage: 5 MICROGRAM, TID
     Dates: end: 20250115
  17. SERTRALINE HYDROCHLORIDE [Concomitant]
     Active Substance: SERTRALINE HYDROCHLORIDE
     Indication: Constipation
     Dosage: 50 MICROGRAM, TID
     Dates: end: 20250115
  18. SERTRALINE HYDROCHLORIDE [Concomitant]
     Active Substance: SERTRALINE HYDROCHLORIDE
     Indication: Depression
  19. AMITIZA [Concomitant]
     Active Substance: LUBIPROSTONE
     Dates: end: 20250107
  20. AMITIZA [Concomitant]
     Active Substance: LUBIPROSTONE
     Indication: Constipation

REACTIONS (6)
  - Acute kidney injury [Fatal]
  - Hyperkalaemia [Fatal]
  - Cholangitis acute [Not Recovered/Not Resolved]
  - Diarrhoea [Not Recovered/Not Resolved]
  - Neutrophil count decreased [Recovered/Resolved]
  - Pruritus [Not Recovered/Not Resolved]

NARRATIVE: CASE EVENT DATE: 20241119
